FAERS Safety Report 24557922 (Version 1)
Quarter: 2024Q4

REPORT INFORMATION
  Report Type: Spontaneous
  Country: GB (occurrence: GB)
  Receive Date: 20241028
  Receipt Date: 20241028
  Transmission Date: 20250115
  Serious: Yes (Other)
  Sender: AUROBINDO
  Company Number: GB-MHRA-MED-202410151753239900-JSLYZ

PATIENT
  Age: 75 Year
  Sex: Male
  Weight: 78 kg

DRUGS (3)
  1. CLARITHROMYCIN [Suspect]
     Active Substance: CLARITHROMYCIN
     Indication: Chronic sinusitis
     Dosage: 500 MILLIGRAM, EVERY OTHER DAY
     Route: 065
     Dates: start: 20241002, end: 20241002
  2. ASPIRIN [Concomitant]
     Active Substance: ASPIRIN
     Indication: Product used for unknown indication
     Dosage: UNK
     Route: 065
  3. DESMOPRESSIN [Concomitant]
     Active Substance: DESMOPRESSIN
     Indication: Nocturia
     Dosage: UNK
     Route: 065

REACTIONS (1)
  - Inappropriate affect [Recovered/Resolved]

NARRATIVE: CASE EVENT DATE: 20241002
